FAERS Safety Report 10515460 (Version 1)
Quarter: 2014Q4

REPORT INFORMATION
  Report Type: Spontaneous
  Country: FR (occurrence: None)
  Receive Date: 20141009
  Receipt Date: 20141009
  Transmission Date: 20150528
  Serious: Yes (Congenital Anomaly, Other)
  Sender: FDA-Public Use
  Company Number: 20140519-001

PATIENT
  Age: 76 Year
  Sex: Female
  Weight: 60 kg

DRUGS (6)
  1. CORDARONE (AMIDARONE HYDROCHLORIDE) [Concomitant]
  2. PREVISCAN (FLUINDIONE) [Concomitant]
     Active Substance: FLUINDIONE
     Indication: PSORIASIS
  3. BISOPROLOL [Concomitant]
     Active Substance: BISOPROLOL
  4. METOJECT (METHOTREXATE) [Suspect]
     Active Substance: METHOTREXATE SODIUM
     Indication: PSORIASIS
     Dosage: SOLUTION FOR INJECTION IN PRE-FILLED SYRINGE, 1X10MG IN 1 WEEK
     Route: 058
  5. SPECIAFOLDINE (FOLIC ACID) [Concomitant]
     Active Substance: FOLIC ACID
  6. LEVOTHYROX/LEVOTHYROXINE [Concomitant]

REACTIONS (2)
  - Melanosis coli [None]
  - Pain [None]

NARRATIVE: CASE EVENT DATE: 201403
